FAERS Safety Report 7491203-0 (Version None)
Quarter: 2011Q2

REPORT INFORMATION
  Report Type: 
  Country: None (occurrence: None)
  Receive Date: 20110518
  Receipt Date: 20110518
  Transmission Date: 20111010
  Serious: Yes (Hospitalization)
  Sender: FDA-Public Use
  Company Number: None

PATIENT
  Sex: Male
  Weight: 100 kg

DRUGS (7)
  1. CLEOSIN GEL [Concomitant]
  2. ACTOS [Concomitant]
  3. LOSOPT [Concomitant]
  4. SIMVASTATIN [Suspect]
     Indication: HYPERLIPIDAEMIA
     Dosage: 40 MG DAILY PO
     Route: 048
  5. DILTIAZEM [Suspect]
     Indication: HYPERTENSION
     Dosage: 480 MG DAILY PO
     Route: 047
  6. IMODIUM [Concomitant]
  7. COMPAZINE [Concomitant]

REACTIONS (2)
  - RHABDOMYOLYSIS [None]
  - TREATMENT NONCOMPLIANCE [None]
